FAERS Safety Report 7219139-0 (Version None)
Quarter: 2011Q1

REPORT INFORMATION
  Report Type: 
  Country: None (occurrence: None)
  Receive Date: 20110111
  Receipt Date: 20101230
  Transmission Date: 20110831
  Serious: Yes (Hospitalization, Other)
  Sender: FDA-Public Use
  Company Number: US-ELI_LILLY_AND_COMPANY-US201012000100

PATIENT
  Age: 64 Year
  Sex: Female

DRUGS (1)
  1. FORTEO [Suspect]
     Indication: OSTEOPOROSIS
     Dosage: 20 UG, DAILY (1/D)
     Route: 058
     Dates: start: 20100501

REACTIONS (6)
  - ANGIOPLASTY [None]
  - SURGERY [None]
  - IMPAIRED HEALING [None]
  - FOOT FRACTURE [None]
  - WOUND INFECTION [None]
  - HOSPITALISATION [None]
